FAERS Safety Report 12606140 (Version 1)
Quarter: 2016Q3

REPORT INFORMATION
  Report Type: Spontaneous
  Country: US (occurrence: None)
  Receive Date: 20160728
  Receipt Date: 20160728
  Transmission Date: 20161109
  Serious: No
  Sender: FDA-Public Use
  Company Number: None

PATIENT
  Sex: Female

DRUGS (2)
  1. TRULICITY [Suspect]
     Active Substance: DULAGLUTIDE
  2. INVOKANA [Suspect]
     Active Substance: CANAGLIFLOZIN

REACTIONS (3)
  - Weight decreased [None]
  - Decreased appetite [None]
  - Hospitalisation [None]
